FAERS Safety Report 23616659 (Version 1)
Quarter: 2024Q1

REPORT INFORMATION
  Report Type: Spontaneous
  Country: US (occurrence: US)
  Receive Date: 20240311
  Receipt Date: 20240311
  Transmission Date: 20240409
  Serious: No
  Sender: FDA-Public Use
  Company Number: US-BRISTOL-MYERS SQUIBB COMPANY-2024-038224

PATIENT
  Age: 65 Year
  Sex: Female
  Weight: 68.49 kg

DRUGS (7)
  1. ELIQUIS [Suspect]
     Active Substance: APIXABAN
     Indication: Atrial fibrillation
     Route: 048
     Dates: start: 202401, end: 202401
  2. ELIQUIS [Suspect]
     Active Substance: APIXABAN
     Indication: Tachycardia
     Route: 048
     Dates: start: 202402
  3. METOPROLOL SUCCINATE [Concomitant]
     Active Substance: METOPROLOL SUCCINATE
     Indication: Product used for unknown indication
  4. MAGNESIUM GLYCINATE [Concomitant]
     Active Substance: MAGNESIUM GLYCINATE
     Indication: Product used for unknown indication
  5. D3 +K2 [Concomitant]
     Indication: Product used for unknown indication
     Dosage: VITAMIN D3 5000 IU WITH K2 100
  6. QUNOL TURMERIC EXTRA STRENGTH [Concomitant]
     Indication: Product used for unknown indication
  7. VITAMINS NOS [Concomitant]
     Active Substance: VITAMINS
     Indication: Product used for unknown indication

REACTIONS (1)
  - Hypotension [Unknown]
